FAERS Safety Report 7381257-4 (Version None)
Quarter: 2011Q1

REPORT INFORMATION
  Report Type: 
  Country: None (occurrence: None)
  Receive Date: 20110321
  Receipt Date: 20110314
  Transmission Date: 20110831
  Serious: Yes (Other)
  Sender: FDA-Public Use
  Company Number: WAES 1103USA01787

PATIENT
  Age: 57 Year
  Sex: Female
  Weight: 131.5431 kg

DRUGS (15)
  1. LORTAB [Concomitant]
  2. ZOCOR [Suspect]
     Indication: BLOOD CHOLESTEROL INCREASED
     Dosage: PO
     Route: 048
     Dates: start: 20100101, end: 20100101
  3. LYRICA [Suspect]
     Indication: NEUROPATHY PERIPHERAL
     Dosage: 50 MG/QID/PO
     Route: 048
     Dates: start: 20100101
  4. COREG [Concomitant]
  5. ADVAIR HFA [Concomitant]
  6. COMBIVENT [Concomitant]
  7. NEURONTIN [Suspect]
     Indication: NEUROPATHY PERIPHERAL
     Dosage: 600 MG/TID/PO
     Route: 048
     Dates: start: 20100101
  8. OMEGA-3 MARINE TRIGLYCERIDES [Concomitant]
  9. PROTONIX [Suspect]
     Indication: ABDOMINAL DISCOMFORT
     Dosage: 40 MG DAILY PO
     Route: 048
  10. ASPIRIN [Concomitant]
  11. CLONIDINE [Concomitant]
  12. PAXIL [Concomitant]
  13. PREMARIN [Suspect]
     Indication: HYSTERECTOMY
     Dosage: 0.625 MG/DAILY/PO
     Route: 048
  14. XANAX [Concomitant]
  15. ATACAND [Concomitant]

REACTIONS (14)
  - CEREBROVASCULAR ACCIDENT [None]
  - COMA [None]
  - COUGH [None]
  - PAIN [None]
  - NEUROPATHY PERIPHERAL [None]
  - BLOOD CHOLESTEROL INCREASED [None]
  - HEADACHE [None]
  - DIABETES MELLITUS [None]
  - DRUG INEFFECTIVE [None]
  - MUSCULOSKELETAL STIFFNESS [None]
  - PARALYSIS [None]
  - BLOOD TRIGLYCERIDES INCREASED [None]
  - RENAL DISORDER [None]
  - MEMORY IMPAIRMENT [None]
